FAERS Safety Report 5001629-2 (Version None)
Quarter: 2006Q2

REPORT INFORMATION
  Report Type: 
  Country: None (occurrence: None)
  Receive Date: 20060515
  Receipt Date: 20060504
  Transmission Date: 20061013
  Serious: Yes (Disabling, Other)
  Sender: FDA-Public Use
  Company Number: PHBS2006ES06737

PATIENT
  Age: 75 Year
  Sex: Male

DRUGS (2)
  1. ZOMETA [Suspect]
     Indication: MULTIPLE MYELOMA
     Dosage: 4 MG, QMO
     Route: 042
     Dates: start: 20030101, end: 20040901
  2. PAMIDRONATE DISODIUM [Suspect]
     Indication: MULTIPLE MYELOMA

REACTIONS (4)
  - FISTULA [None]
  - NODULE [None]
  - OSTEONECROSIS [None]
  - PAIN IN JAW [None]
